FAERS Safety Report 23599406 (Version 2)
Quarter: 2025Q2

REPORT INFORMATION
  Report Type: Spontaneous
  Country: US (occurrence: US)
  Receive Date: 20240306
  Receipt Date: 20250401
  Transmission Date: 20250716
  Serious: No
  Sender: PTC THERAPEUTICS
  Company Number: US-PTC THERAPEUTICS INC.-US-2023PTC001684

PATIENT
  Sex: Male

DRUGS (2)
  1. EMFLAZA [Suspect]
     Active Substance: DEFLAZACORT
     Indication: Product used for unknown indication
     Dosage: 18 MILLIGRAM, QD
     Route: 065
  2. EMFLAZA [Suspect]
     Active Substance: DEFLAZACORT
     Dosage: 15 MG, QD
     Route: 048
     Dates: end: 2024

REACTIONS (1)
  - Behaviour disorder [Unknown]
